FAERS Safety Report 10293654 (Version 1)
Quarter: 2014Q3

REPORT INFORMATION
  Report Type: Spontaneous
  Country: PT (occurrence: PT)
  Receive Date: 20140710
  Receipt Date: 20140710
  Transmission Date: 20150326
  Serious: Yes (Hospitalization, Other)
  Sender: FDA-Public Use
  Company Number: PT-PAR PHARMACEUTICAL, INC-2014SCPR009240

PATIENT

DRUGS (4)
  1. ADRENALIN [Suspect]
     Active Substance: EPINEPHRINE
     Indication: ANAPHYLACTIC REACTION
     Dosage: 1 MG, SINGLE
     Route: 042
  2. ADRENALIN [Suspect]
     Active Substance: EPINEPHRINE
     Dosage: 0.5 MG, TWICE
     Route: 030
  3. CLEMASTIN [Concomitant]
     Active Substance: CLEMASTINE
     Indication: ANAPHYLACTIC REACTION
     Dosage: UNK, UNKNOWN
     Route: 065
  4. HYDROCORTISONE. [Concomitant]
     Active Substance: HYDROCORTISONE
     Indication: ANAPHYLACTIC REACTION
     Dosage: UNK, UNKNOWN
     Route: 065

REACTIONS (9)
  - Tachycardia [None]
  - Stress cardiomyopathy [Recovered/Resolved]
  - Haemoptysis [None]
  - Medication error [Unknown]
  - Anaphylactic reaction [None]
  - Dyspnoea [None]
  - Incorrect route of drug administration [None]
  - Hypotension [None]
  - Labile blood pressure [None]
